FAERS Safety Report 8405179-2 (Version None)
Quarter: 2012Q2

REPORT INFORMATION
  Report Type: 
  Country: None (occurrence: None)
  Receive Date: 20120603
  Receipt Date: 20120524
  Transmission Date: 20120825
  Serious: Yes (Hospitalization)
  Sender: FDA-Public Use
  Company Number: US-VERTEX PHARMACEUTICALS INC.-AE-2012-007764

PATIENT
  Sex: Female
  Weight: 63.56 kg

DRUGS (3)
  1. INCIVEK [Suspect]
     Indication: HEPATITIS C
     Dates: start: 20110101
  2. RIBAVIRIN [Concomitant]
     Indication: HEPATITIS C
     Dates: start: 20110101
  3. PEGASYS [Concomitant]
     Indication: HEPATITIS C
     Dates: start: 20110101

REACTIONS (5)
  - DIZZINESS [None]
  - DIARRHOEA [None]
  - NAUSEA [None]
  - HEADACHE [None]
  - VOMITING [None]
